FAERS Safety Report 14777676 (Version 1)
Quarter: 2018Q2

REPORT INFORMATION
  Report Type: Spontaneous
  Country: US (occurrence: US)
  Receive Date: 20180412
  Receipt Date: 20180412
  Transmission Date: 20180711
  Serious: Yes (Other)
  Sender: FDA-Public Use
  Company Number: None

PATIENT
  Age: 61 Year
  Sex: Male
  Weight: 108 kg

DRUGS (2)
  1. OXYCODONE/ ACETAMINOPHEN 10/325 [Suspect]
     Active Substance: ACETAMINOPHEN\OXYCODONE HYDROCHLORIDE
     Indication: OSTEOARTHRITIS
     Dosage: ?          QUANTITY:90 TABLET(S);?
     Route: 048
     Dates: start: 20180411
  2. SYNTHROID [Concomitant]
     Active Substance: LEVOTHYROXINE SODIUM

REACTIONS (6)
  - Pain [None]
  - Affective disorder [None]
  - Headache [None]
  - Cough [None]
  - Drug ineffective [None]
  - Product substitution issue [None]

NARRATIVE: CASE EVENT DATE: 20180411
